FAERS Safety Report 12059871 (Version 4)
Quarter: 2016Q2

REPORT INFORMATION
  Report Type: Spontaneous
  Country: GB (occurrence: GB)
  Receive Date: 20160210
  Receipt Date: 20160425
  Transmission Date: 20160815
  Serious: Yes (Hospitalization, Other)
  Sender: FDA-Public Use
  Company Number: GB-TEVA-631581ACC

PATIENT
  Age: 77 Year
  Sex: Female

DRUGS (4)
  1. DOCETAXEL. [Suspect]
     Active Substance: DOCETAXEL
     Indication: PRODUCT USED FOR UNKNOWN INDICATION
     Dosage: UNK
     Route: 065
  2. HERCEPTIN [Suspect]
     Active Substance: TRASTUZUMAB
     Indication: PRODUCT USED FOR UNKNOWN INDICATION
     Dosage: CYCLE 2, CYCLE 8,  CYCLE 10
     Route: 042
  3. PERTUZUMAB [Suspect]
     Active Substance: PERTUZUMAB
     Indication: PRODUCT USED FOR UNKNOWN INDICATION
     Dosage: CYCLE 8, CYCLE 10
     Route: 065
  4. NEULASTA [Suspect]
     Active Substance: PEGFILGRASTIM
     Indication: PRODUCT USED FOR UNKNOWN INDICATION
     Route: 065
     Dates: start: 20150730

REACTIONS (48)
  - Cellulitis [Unknown]
  - Hypoaesthesia [Unknown]
  - Asthenia [Unknown]
  - Oral candidiasis [Unknown]
  - Influenza like illness [Unknown]
  - Device dislocation [Unknown]
  - Gingival pain [Unknown]
  - Tongue coated [Unknown]
  - Breast mass [Unknown]
  - Chronic obstructive pulmonary disease [Unknown]
  - Arthralgia [Unknown]
  - Alopecia [Unknown]
  - Pollakiuria [Recovered/Resolved]
  - Fatigue [Unknown]
  - Cough [Unknown]
  - Lethargy [Unknown]
  - Nausea [Recovered/Resolved]
  - Chest discomfort [Unknown]
  - Vaginal prolapse [Unknown]
  - Insomnia [Unknown]
  - Musculoskeletal discomfort [Unknown]
  - Ulcer [Unknown]
  - Bone pain [Unknown]
  - Sensory disturbance [Unknown]
  - Scar [Unknown]
  - Vein disorder [Unknown]
  - Mastectomy [Unknown]
  - Diarrhoea [Unknown]
  - Dysgeusia [Unknown]
  - Glossodynia [Unknown]
  - Pain in extremity [Unknown]
  - Constipation [Not Recovered/Not Resolved]
  - Paraesthesia [Unknown]
  - Hypophagia [Unknown]
  - Dyspnoea [Unknown]
  - Paraesthesia oral [Unknown]
  - Seroma [Unknown]
  - Urinary tract infection [Unknown]
  - Lower respiratory tract infection [Unknown]
  - Micturition urgency [Not Recovered/Not Resolved]
  - Decreased appetite [Unknown]
  - Feeling abnormal [Unknown]
  - Productive cough [Recovered/Resolved]
  - Contusion [Unknown]
  - Oral pain [Unknown]
  - Irritable bowel syndrome [Unknown]
  - Vascular fragility [Unknown]
  - Anxiety [Unknown]

NARRATIVE: CASE EVENT DATE: 20150730
